FAERS Safety Report 23576347 (Version 2)
Quarter: 2024Q1

REPORT INFORMATION
  Report Type: Spontaneous
  Country: BR (occurrence: BR)
  Receive Date: 20240228
  Receipt Date: 20240304
  Transmission Date: 20240410
  Serious: Yes (Other)
  Sender: FDA-Public Use
  Company Number: BR-PFIZER INC-202400049498

PATIENT
  Age: 76 Year
  Sex: Female
  Weight: 51.7 kg

DRUGS (11)
  1. RUXIENCE [Suspect]
     Active Substance: RITUXIMAB-PVVR
     Indication: Chronic lymphocytic leukaemia
     Dosage: 500 MG, CYCLIC
     Route: 042
     Dates: start: 20240110, end: 20240110
  2. RUXIENCE [Suspect]
     Active Substance: RITUXIMAB-PVVR
     Dosage: 500 MG, CYCLIC
     Route: 042
     Dates: start: 20240110, end: 20240110
  3. ALLOPURINOL [Concomitant]
     Active Substance: ALLOPURINOL
     Dosage: DOSE: 300, 1X/DAY
     Route: 048
  4. BISACODYL [Concomitant]
     Active Substance: BISACODYL
     Dosage: DOSE: 310, 1X/DAY
     Route: 048
  5. CYCLOPHOSPHAMIDE [Concomitant]
     Active Substance: CYCLOPHOSPHAMIDE
     Indication: Chronic lymphocytic leukaemia
     Dosage: 219 MG, CYCLIC, (DURATION): 60 MINUTES
     Route: 042
     Dates: start: 20240110, end: 20240110
  6. DIPHENHYDRAMINE [Concomitant]
     Active Substance: DIPHENHYDRAMINE
     Indication: Premedication
     Dosage: 50 MG, CYCLIC
     Route: 042
     Dates: start: 20240110, end: 20240110
  7. FLUDARABINE [Concomitant]
     Active Substance: FLUDARABINE PHOSPHATE
     Indication: Chronic lymphocytic leukaemia
     Dosage: 21.9 MG, CYCLIC, (DURATION): 30 MINUTES
     Route: 042
     Dates: start: 20240110, end: 20240110
  8. LEVOFLOXACIN [Concomitant]
     Active Substance: LEVOFLOXACIN
     Dosage: DOSE: 500, 1X/DAY
     Route: 048
  9. ONDANSETRON [Concomitant]
     Active Substance: ONDANSETRON
     Indication: Premedication
     Dosage: 8 MG, CYCLIC, (DURATION): 10 MINUTES
     Route: 042
     Dates: start: 20240110, end: 20240110
  10. OMEPRAZOLE [Concomitant]
     Active Substance: OMEPRAZOLE
     Dosage: DOSE: 20, 1X/DAY
     Route: 048
  11. ACETAMINOPHEN [Concomitant]
     Active Substance: ACETAMINOPHEN
     Indication: Premedication
     Dosage: 500 MG, CYCLIC
     Dates: start: 20240110, end: 20240110

REACTIONS (9)
  - Oropharyngeal discomfort [Recovered/Resolved]
  - Feeling hot [Recovered/Resolved]
  - Bradycardia [Recovered/Resolved]
  - Oxygen saturation decreased [Recovered/Resolved]
  - Tremor [Recovered/Resolved]
  - Back pain [Recovered/Resolved]
  - Agitation [Recovered/Resolved]
  - Hypertension [Recovered/Resolved]
  - Drug hypersensitivity [Recovered/Resolved]

NARRATIVE: CASE EVENT DATE: 20240110
